FAERS Safety Report 17812751 (Version 1)
Quarter: 2020Q2

REPORT INFORMATION
  Report Type: Spontaneous
  Country: US (occurrence: US)
  Receive Date: 20200521
  Receipt Date: 20200521
  Transmission Date: 20200714
  Serious: Yes (Hospitalization, Other)
  Sender: FDA-Public Use
  Company Number: US-ALEXION PHARMACEUTICALS INC.-A202006921

PATIENT
  Age: 62 Year
  Sex: Female

DRUGS (2)
  1. SOLIRIS [Suspect]
     Active Substance: ECULIZUMAB
     Dosage: 1200 MG, Q2W
     Route: 065
  2. SOLIRIS [Suspect]
     Active Substance: ECULIZUMAB
     Indication: NEUROMYELITIS OPTICA SPECTRUM DISORDER
     Dosage: UNK
     Route: 042
     Dates: start: 202002

REACTIONS (13)
  - Dysphemia [Unknown]
  - Hot flush [Unknown]
  - Amnesia [Unknown]
  - Facial pain [Recovered/Resolved]
  - Injection related reaction [Unknown]
  - Loss of consciousness [Unknown]
  - Stress [Unknown]
  - Neck pain [Recovered/Resolved]
  - Fatigue [Unknown]
  - Presyncope [Unknown]
  - Speech disorder [Recovering/Resolving]
  - Musculoskeletal stiffness [Unknown]
  - Malaise [Unknown]

NARRATIVE: CASE EVENT DATE: 20200512
